FAERS Safety Report 4813952-2 (Version None)
Quarter: 2005Q4

REPORT INFORMATION
  Report Type: 
  Country: None (occurrence: None)
  Receive Date: 20051028
  Receipt Date: 20041029
  Transmission Date: 20060501
  Serious: No
  Sender: FDA-Public Use
  Company Number: US-GLAXOSMITHKLINE-A0531829A

PATIENT
  Age: 87 Year
  Sex: Male

DRUGS (8)
  1. SEREVENT [Suspect]
     Indication: CHRONIC OBSTRUCTIVE PULMONARY DISEASE
     Dosage: 1PUFF TWICE PER DAY
     Route: 055
     Dates: start: 20040930
  2. SINGULAIR [Concomitant]
  3. HYTRIN [Concomitant]
  4. REMIFENTANIL [Concomitant]
  5. ASPIRIN [Concomitant]
  6. MULTI-VITAMIN [Concomitant]
  7. LUTEIN [Concomitant]
  8. SAWPALMETTO [Concomitant]

REACTIONS (1)
  - WHEEZING [None]
